FAERS Safety Report 7279600-X (Version None)
Quarter: 2011Q1

REPORT INFORMATION
  Report Type: 
  Country: None (occurrence: None)
  Receive Date: 20110203
  Receipt Date: 20110203
  Transmission Date: 20110831
  Serious: No
  Sender: FDA-Public Use
  Company Number: None

PATIENT
  Age: 70 Year
  Sex: Female
  Weight: 64 kg

DRUGS (2)
  1. CLONIDINE [Suspect]
     Indication: HYPERTENSION
     Dosage: 0.2MG DAILY
     Dates: start: 20110112, end: 20110119
  2. TENORETIC [Concomitant]

REACTIONS (5)
  - WRONG TECHNIQUE IN DRUG USAGE PROCESS [None]
  - MUSCULAR WEAKNESS [None]
  - PRODUCT SUBSTITUTION ISSUE [None]
  - FATIGUE [None]
  - BLOOD PRESSURE SYSTOLIC INCREASED [None]
